FAERS Safety Report 5602531-5 (Version None)
Quarter: 2008Q1

REPORT INFORMATION
  Report Type: 
  Country: None (occurrence: None)
  Receive Date: 20080125
  Receipt Date: 20080122
  Transmission Date: 20080703
  Serious: Yes (Life-Threatening)
  Sender: FDA-Public Use
  Company Number: B0504296A

PATIENT
  Age: 61 Year
  Sex: Female

DRUGS (6)
  1. AUGMENTIN '125' [Suspect]
     Indication: PROPHYLAXIS
     Dosage: 2G SINGLE DOSE
     Route: 042
     Dates: start: 20071119, end: 20071119
  2. NIMBEX [Suspect]
     Dosage: 7MG SINGLE DOSE
     Route: 042
     Dates: start: 20071119, end: 20071119
  3. FLAGYL [Suspect]
     Indication: PROPHYLAXIS
     Dosage: 500MG SINGLE DOSE
     Route: 042
     Dates: start: 20071119, end: 20071119
  4. SUFENTA [Suspect]
     Dosage: 20MCG SINGLE DOSE
     Route: 042
     Dates: start: 20071119, end: 20071119
  5. PROPOFOL [Suspect]
     Dosage: 150MG SINGLE DOSE
     Route: 042
     Dates: start: 20071119, end: 20071119
  6. BETADINE [Concomitant]
     Indication: PROPHYLAXIS
     Route: 050
     Dates: start: 20071119, end: 20071119

REACTIONS (7)
  - ANAPHYLACTIC SHOCK [None]
  - BRONCHOSPASM [None]
  - HYPOCAPNIA [None]
  - HYPOTENSION [None]
  - OXYGEN SATURATION DECREASED [None]
  - PETECHIAE [None]
  - URTICARIA [None]
